FAERS Safety Report 14068569 (Version 1)
Quarter: 2017Q4

REPORT INFORMATION
  Report Type: Spontaneous
  Country: US (occurrence: US)
  Receive Date: 20171010
  Receipt Date: 20171010
  Transmission Date: 20180321
  Serious: No
  Sender: FDA-Public Use
  Company Number: US-PFIZER INC-2017434771

PATIENT
  Age: 10 Year
  Sex: Male

DRUGS (1)
  1. QUILLICHEW ER [Suspect]
     Active Substance: METHYLPHENIDATE HYDROCHLORIDE
     Dosage: 20 MG ONCE A DAY CHEW BY MOUTH
     Route: 048

REACTIONS (2)
  - Disturbance in attention [Unknown]
  - Aggression [Unknown]
